FAERS Safety Report 7580949-1 (Version None)
Quarter: 2011Q2

REPORT INFORMATION
  Report Type: 
  Country: None (occurrence: None)
  Receive Date: 20110622
  Receipt Date: 20110607
  Transmission Date: 20111010
  Serious: Yes (Other)
  Sender: FDA-Public Use
  Company Number: 2011MA007851

PATIENT
  Age: 46 Year
  Sex: Male

DRUGS (5)
  1. FLUOXETINE [Concomitant]
  2. VITAMIN B COMPLEX CAP [Concomitant]
  3. RAMIPRIL [Suspect]
     Indication: HYPERTENSION
     Dosage: 10 MG; ; PO
     Route: 048
     Dates: start: 20100719, end: 20110509
  4. DISULFIRAM [Suspect]
     Dosage: 200 MG; ; PO
     Route: 048
     Dates: start: 20110328, end: 20110428
  5. ACAMPROSATE CALCIUM [Suspect]
     Dosage: 666 MG; TID;
     Dates: start: 20110328

REACTIONS (2)
  - ALANINE AMINOTRANSFERASE INCREASED [None]
  - GAMMA-GLUTAMYLTRANSFERASE INCREASED [None]
